FAERS Safety Report 23227449 (Version 2)
Quarter: 2024Q1

REPORT INFORMATION
  Report Type: Spontaneous
  Country: IN (occurrence: IN)
  Receive Date: 20231124
  Receipt Date: 20240103
  Transmission Date: 20240410
  Serious: Yes (Death, Other)
  Sender: FDA-Public Use
  Company Number: IN-PFIZER INC-PV202300103016

PATIENT
  Age: 57 Year
  Sex: Male
  Weight: 63 kg

DRUGS (2)
  1. CRIZOTINIB [Suspect]
     Active Substance: CRIZOTINIB
     Indication: Non-small cell lung cancer metastatic
     Dosage: 250 MG, 2X/DAY
     Route: 048
     Dates: start: 20221029
  2. CRIZOTINIB [Suspect]
     Active Substance: CRIZOTINIB
     Dosage: 250 MG
     Route: 048
     Dates: start: 20230608, end: 20231006

REACTIONS (7)
  - Respiratory failure [Fatal]
  - Neoplasm progression [Fatal]
  - Respiratory rate increased [Unknown]
  - Peripheral swelling [Not Recovered/Not Resolved]
  - Dizziness [Recovered/Resolved]
  - Hypotension [Recovered/Resolved]
  - Pleural effusion [Unknown]

NARRATIVE: CASE EVENT DATE: 20221201
